FAERS Safety Report 12775102 (Version 2)
Quarter: 2016Q3

REPORT INFORMATION
  Report Type: Report from Study
  Country: BE (occurrence: BE)
  Receive Date: 20160923
  Receipt Date: 20160926
  Transmission Date: 20161109
  Serious: Yes (Hospitalization)
  Sender: FDA-Public Use
  Company Number: BE-ABBVIE-15P-013-1371522-00

PATIENT
  Age: 78 Year
  Sex: Female

DRUGS (16)
  1. DUODOPA [Suspect]
     Active Substance: CARBIDOPA\LEVODOPA
     Indication: PARKINSON^S DISEASE
     Dosage: AM = 2.5 ML, CD = 2.5 ML/H DURING 16H, ED = 1.5 ML
     Route: 050
     Dates: start: 20100308, end: 20100309
  2. DUODOPA [Suspect]
     Active Substance: CARBIDOPA\LEVODOPA
     Dosage: DOSE CONTINUOUSLY MONITORED AND ADAPTED
     Route: 050
     Dates: start: 20100309, end: 20140923
  3. DUODOPA [Suspect]
     Active Substance: CARBIDOPA\LEVODOPA
     Dosage: AM=1.2ML ; CD=2ML/HR DURING 16HRS; ED=1.5ML
     Route: 050
     Dates: start: 20151203, end: 20151224
  4. DUODOPA [Suspect]
     Active Substance: CARBIDOPA\LEVODOPA
     Dosage: AM=0.8ML;CD=2.2ML/HR DURING 16HRS; ED=1.5ML
     Route: 050
     Dates: start: 20160127, end: 20160203
  5. DUODOPA [Suspect]
     Active Substance: CARBIDOPA\LEVODOPA
     Dosage: AM=0ML, CD=1.3ML/HR DURING 16HRS, ED=1ML
     Route: 050
     Dates: start: 20160921
  6. DUODOPA [Suspect]
     Active Substance: CARBIDOPA\LEVODOPA
     Dosage: AM=1.6ML; CD=2.2ML/HR DURING 16HRS; ED=1.5ML
     Route: 050
     Dates: start: 20150826, end: 20151013
  7. DUODOPA [Suspect]
     Active Substance: CARBIDOPA\LEVODOPA
     Dosage: AM=0.8ML; CD=1.9ML/H FOR 16HRS; ED=1.5ML
     Route: 050
     Dates: start: 20160203, end: 20160518
  8. DUODOPA [Suspect]
     Active Substance: CARBIDOPA\LEVODOPA
     Dosage: AM=0.5ML, CD=1.5ML/HR DURING 16HRS, ED=1.5ML
     Route: 050
     Dates: start: 20160809, end: 20160905
  9. DUODOPA [Suspect]
     Active Substance: CARBIDOPA\LEVODOPA
     Dosage: AM = 2 ML, CD = 2.3 ML/H DURING 16H, ED = 1.5 ML
     Route: 050
     Dates: start: 20140923, end: 20150330
  10. DUODOPA [Suspect]
     Active Substance: CARBIDOPA\LEVODOPA
     Dosage: AM = 1.6 ML, CD = 2.3 ML/H DURING 16H, ED = 1.5 ML
     Route: 050
     Dates: start: 20150330, end: 20150826
  11. DUODOPA [Suspect]
     Active Substance: CARBIDOPA\LEVODOPA
     Dosage: AM=1.4ML; CD=2ML/HR DURING 16HRS; ED=1.5ML
     Route: 050
     Dates: start: 20151013, end: 20151203
  12. DUODOPA [Suspect]
     Active Substance: CARBIDOPA\LEVODOPA
     Dosage: AM DOSE=0.6ML; CD=1.5ML/H DURING 16HRS AND ED=1.5ML
     Route: 050
     Dates: start: 20160610, end: 20160708
  13. DUODOPA [Suspect]
     Active Substance: CARBIDOPA\LEVODOPA
     Dosage: AM DOSE=0.5ML; CD=1.3ML/H DURING 16HRS AND ED=1.5ML
     Route: 050
     Dates: start: 20160708, end: 20160809
  14. DUODOPA [Suspect]
     Active Substance: CARBIDOPA\LEVODOPA
     Dosage: AM= 0.5 ML; CD= 1.4 ML/H DURING 16 HRS; ED= 1 ML
     Route: 050
     Dates: start: 20160905, end: 20160921
  15. DUODOPA [Suspect]
     Active Substance: CARBIDOPA\LEVODOPA
     Dosage: AM DOSE=1.2ML, CD=2.2ML/H FOR 16HRS AND ED=1.5ML
     Route: 050
     Dates: start: 20151224, end: 20160127
  16. DUODOPA [Suspect]
     Active Substance: CARBIDOPA\LEVODOPA
     Dosage: AM DOSE=0.4ML; CD=1.9ML/H DURING 16HRS AND ED=1.5ML
     Route: 050
     Dates: start: 20160518, end: 20160610

REACTIONS (9)
  - Freezing phenomenon [Unknown]
  - Device dislocation [Recovered/Resolved]
  - Fall [Recovered/Resolved]
  - On and off phenomenon [Not Recovered/Not Resolved]
  - Dyskinesia [Recovered/Resolved]
  - Dyskinesia [Not Recovered/Not Resolved]
  - Device dislocation [Unknown]
  - General physical health deterioration [Unknown]
  - Confusional state [Unknown]

NARRATIVE: CASE EVENT DATE: 20160921
